FAERS Safety Report 20893344 (Version 1)
Quarter: 2022Q2

REPORT INFORMATION
  Report Type: Spontaneous
  Country: RU (occurrence: RU)
  Receive Date: 20220531
  Receipt Date: 20220531
  Transmission Date: 20220721
  Serious: Yes (Hospitalization, Other)
  Sender: FDA-Public Use
  Company Number: RU-SUN PHARMACEUTICAL INDUSTRIES LTD-2022R1-338004

PATIENT
  Age: 15 Year
  Sex: Male

DRUGS (14)
  1. CARBAMAZEPINE [Suspect]
     Active Substance: CARBAMAZEPINE
     Indication: Hyperaemia
     Dosage: UNK
     Route: 065
  2. CARBAMAZEPINE [Suspect]
     Active Substance: CARBAMAZEPINE
     Indication: Peripheral swelling
  3. PREGABALIN [Suspect]
     Active Substance: PREGABALIN
     Indication: Hyperaemia
     Dosage: UNK
     Route: 065
  4. PREGABALIN [Suspect]
     Active Substance: PREGABALIN
     Indication: Peripheral swelling
  5. GABAPENTIN [Suspect]
     Active Substance: GABAPENTIN
     Indication: Hyperaemia
     Dosage: UNK
     Route: 065
  6. GABAPENTIN [Suspect]
     Active Substance: GABAPENTIN
     Indication: Peripheral swelling
  7. AMITRIPTYLINE [Suspect]
     Active Substance: AMITRIPTYLINE
     Indication: Hyperaemia
     Dosage: UNK
     Route: 065
  8. AMITRIPTYLINE [Suspect]
     Active Substance: AMITRIPTYLINE
     Indication: Peripheral swelling
  9. PREDNISOLONE [Suspect]
     Active Substance: PREDNISOLONE
     Indication: Hyperaemia
     Dosage: UNK
     Route: 065
  10. PREDNISOLONE [Suspect]
     Active Substance: PREDNISOLONE
     Indication: Peripheral swelling
  11. LIDOCAINE [Suspect]
     Active Substance: LIDOCAINE
     Indication: Hyperaemia
     Dosage: UNK
     Route: 065
  12. LIDOCAINE [Suspect]
     Active Substance: LIDOCAINE
     Indication: Peripheral swelling
  13. SILVER [Suspect]
     Active Substance: SILVER
     Indication: Hyperaemia
     Dosage: UNK
     Route: 065
  14. SILVER [Suspect]
     Active Substance: SILVER
     Indication: Peripheral swelling

REACTIONS (6)
  - Disease progression [Unknown]
  - Panic attack [Unknown]
  - Respiratory failure [Unknown]
  - Hypertensive crisis [Unknown]
  - Skin ulcer [Unknown]
  - Therapy partial responder [Unknown]
